FAERS Safety Report 9196418 (Version 2)
Quarter: 2013Q2

REPORT INFORMATION
  Report Type: Spontaneous
  Country: US (occurrence: US)
  Receive Date: 20130328
  Receipt Date: 20130416
  Transmission Date: 20140414
  Serious: Yes (Other)
  Sender: FDA-Public Use
  Company Number: US-PFIZER INC-2013098492

PATIENT
  Age: 61 Year
  Sex: Female
  Weight: 97.51 kg

DRUGS (4)
  1. DILANTIN [Suspect]
     Indication: EPILEPSY
     Dosage: 200MG IN THE MORNING AND 300MG AT NIGHT
     Route: 048
     Dates: start: 1966
  2. DILANTIN [Suspect]
     Indication: CONVULSION
     Dosage: UNK
     Route: 048
  3. PHENOBARBITAL [Concomitant]
     Dosage: UNK
  4. WARFARIN [Concomitant]
     Indication: THROMBOSIS
     Dosage: UNK

REACTIONS (7)
  - Pneumonia [Unknown]
  - Anticonvulsant drug level decreased [Unknown]
  - Fall [Unknown]
  - Ear infection [Unknown]
  - Nasopharyngitis [Unknown]
  - Dysphonia [Unknown]
  - Aphonia [Unknown]
